FAERS Safety Report 25882300 (Version 1)
Quarter: 2025Q4

REPORT INFORMATION
  Report Type: Spontaneous
  Country: KR (occurrence: KR)
  Receive Date: 20251006
  Receipt Date: 20251006
  Transmission Date: 20260117
  Serious: Yes (Other)
  Sender: ALEXION PHARMACEUTICALS
  Company Number: KR-AstraZeneca-2023001524511

PATIENT
  Age: 75 Year
  Sex: Female

DRUGS (1)
  1. IRESSA [Suspect]
     Active Substance: GEFITINIB
     Indication: Non-small cell lung cancer
     Dosage: 82 DAY
     Route: 065

REACTIONS (1)
  - Pyoderma [Recovering/Resolving]

NARRATIVE: CASE EVENT DATE: 20231127
